FAERS Safety Report 5951069-4 (Version None)
Quarter: 2008Q4

REPORT INFORMATION
  Report Type: 
  Country: None (occurrence: None)
  Receive Date: 20081111
  Receipt Date: 20081111
  Transmission Date: 20090506
  Serious: No
  Sender: FDA-Public Use
  Company Number: None

PATIENT
  Sex: Male
  Weight: 89.8122 kg

DRUGS (1)
  1. FENOFIBRATE [Suspect]
     Indication: HYPERLIPIDAEMIA
     Dosage: 1 TAB PER DAY PO
     Route: 048
     Dates: start: 20081106, end: 20081108

REACTIONS (2)
  - PRODUCT CONTAMINATION [None]
  - PRODUCT QUALITY ISSUE [None]
